FAERS Safety Report 7449092-6 (Version None)
Quarter: 2011Q2

REPORT INFORMATION
  Report Type: 
  Country: None (occurrence: None)
  Receive Date: 20110502
  Receipt Date: 20100406
  Transmission Date: 20111010
  Serious: No
  Sender: FDA-Public Use
  Company Number: US-BAYER-201019673NA

PATIENT

DRUGS (2)
  1. YAZ [Suspect]
     Dosage: UNK
  2. YAZ [Suspect]
     Dosage: UNK
     Dates: start: 20100301

REACTIONS (2)
  - UNEVALUABLE EVENT [None]
  - UPPER RESPIRATORY TRACT INFECTION [None]
